FAERS Safety Report 6673110-6 (Version None)
Quarter: 2010Q2

REPORT INFORMATION
  Report Type: 
  Country: None (occurrence: None)
  Receive Date: 20100408
  Receipt Date: 20100326
  Transmission Date: 20101027
  Serious: No
  Sender: FDA-Public Use
  Company Number: JP-JNJFOC-20100305456

PATIENT
  Sex: Female

DRUGS (7)
  1. DUROTEP MT [Suspect]
     Indication: CANCER PAIN
     Route: 062
  2. DUROTEP MT [Suspect]
     Dosage: (2 SHEETS)
     Route: 062
  3. DUROTEP MT [Suspect]
     Indication: SLEEP DISORDER
     Dosage: (2 SHEETS)
     Route: 062
  4. DUROTEP MT [Suspect]
     Route: 062
  5. DUROTEP MT [Suspect]
     Indication: UTERINE CANCER
     Route: 062
  6. DUROTEP MT [Suspect]
     Dosage: (2 SHEETS)
     Route: 062
  7. UNKNOWN MEDICATION [Suspect]
     Indication: UTERINE CANCER
     Route: 048

REACTIONS (4)
  - COUGH [None]
  - DRUG PRESCRIBING ERROR [None]
  - INSOMNIA [None]
  - OFF LABEL USE [None]
